FAERS Safety Report 4627159-5 (Version None)
Quarter: 2005Q2

REPORT INFORMATION
  Report Type: 
  Country: None (occurrence: None)
  Receive Date: 20050405
  Receipt Date: 20050325
  Transmission Date: 20051028
  Serious: Yes (Hospitalization)
  Sender: FDA-Public Use
  Company Number: FR-GLAXOSMITHKLINE-B0376391A

PATIENT
  Age: 3 Year
  Sex: Male
  Weight: 13 kg

DRUGS (4)
  1. AUGMENTIN '125' [Suspect]
     Route: 048
     Dates: start: 20050213
  2. AMOXICILLIN [Suspect]
     Route: 065
  3. ADVIL [Concomitant]
     Route: 065
     Dates: start: 20050212
  4. EFFERALGAN [Concomitant]
     Route: 065
     Dates: start: 20050212

REACTIONS (13)
  - ABNORMAL BEHAVIOUR [None]
  - ANOREXIA [None]
  - APHTHOUS STOMATITIS [None]
  - DYSKINESIA [None]
  - DYSPHONIA [None]
  - GLOSSODYNIA [None]
  - HEADACHE [None]
  - MYOCLONUS [None]
  - ODYNOPHAGIA [None]
  - POSTICTAL STATE [None]
  - SOCIAL AVOIDANT BEHAVIOUR [None]
  - TEMPORAL LOBE EPILEPSY [None]
  - UNDERWEIGHT [None]
